FAERS Safety Report 4506320-4 (Version None)
Quarter: 2004Q4

REPORT INFORMATION
  Report Type: 
  Country: None (occurrence: None)
  Receive Date: 20041025
  Receipt Date: 20040202
  Transmission Date: 20050328
  Serious: Yes (Other)
  Sender: FDA-Public Use
  Company Number: US-JNJFOC-20031104927

PATIENT
  Age: 33 Year
  Sex: Female
  Weight: 113.8529 kg

DRUGS (15)
  1. REMICADE [Suspect]
     Indication: CROHN'S DISEASE
     Dosage: 600 MG, INTRAVENOUS
     Route: 042
     Dates: start: 20030408
  2. REMICADE [Suspect]
     Indication: CROHN'S DISEASE
     Dosage: 600 MG, INTRAVENOUS
     Route: 042
     Dates: start: 20030424
  3. REMICADE [Suspect]
     Indication: CROHN'S DISEASE
     Dosage: 600 MG, INTRAVENOUS
     Route: 042
     Dates: start: 20030522
  4. REMICADE [Suspect]
     Indication: CROHN'S DISEASE
     Dosage: 600 MG, INTRAVENOUS
     Route: 042
     Dates: start: 20030611
  5. REMICADE [Suspect]
     Indication: CROHN'S DISEASE
     Dosage: 600 MG, INTRAVENOUS
     Route: 042
     Dates: start: 20030717
  6. REMICADE [Suspect]
     Indication: CROHN'S DISEASE
     Dosage: 600 MG, INTRAVENOUS
     Route: 042
     Dates: start: 20030912
  7. REMICADE [Suspect]
     Indication: CROHN'S DISEASE
     Dosage: 600 MG, INTRAVENOUS
     Route: 042
     Dates: start: 20031215
  8. DARVOCET [Concomitant]
  9. PREDNISONE [Concomitant]
  10. METHOTREXATE [Concomitant]
  11. ASACOL [Concomitant]
  12. HYDROCHLOROTHIAZIDE [Concomitant]
  13. OVCAN (NORMENSAL) [Concomitant]
  14. TYLENOL [Concomitant]
  15. BENADRYL [Concomitant]

REACTIONS (1)
  - LEUKOCYTOCLASTIC VASCULITIS [None]
